FAERS Safety Report 14963887 (Version 1)
Quarter: 2018Q2

REPORT INFORMATION
  Report Type: Report from Study
  Country: US (occurrence: US)
  Receive Date: 20180601
  Receipt Date: 20180601
  Transmission Date: 20180711
  Serious: Yes (Hospitalization, Other)
  Sender: FDA-Public Use
  Company Number: US-BAYER-2018-091415

PATIENT
  Age: 45 Year
  Sex: Female
  Weight: 67.12 kg

DRUGS (5)
  1. XARELTO [Concomitant]
     Active Substance: RIVAROXABAN
     Dosage: UNK
  2. ADEMPAS [Suspect]
     Active Substance: RIOCIGUAT
     Indication: PULMONARY ARTERIAL HYPERTENSION
     Dosage: UNK
     Route: 048
     Dates: start: 20161205
  3. LETAIRIS [Concomitant]
     Active Substance: AMBRISENTAN
     Dosage: UNK
  4. ADEMPAS [Suspect]
     Active Substance: RIOCIGUAT
     Indication: PULMONARY ARTERIAL HYPERTENSION
     Dosage: 2.5 MG, TID
     Route: 048
  5. ORENITRAM [Concomitant]
     Active Substance: TREPROSTINIL
     Dosage: UNK

REACTIONS (3)
  - Hospitalisation [None]
  - Localised infection [Unknown]
  - Loss of consciousness [Unknown]

NARRATIVE: CASE EVENT DATE: 2018
